FAERS Safety Report 12477705 (Version 2)
Quarter: 2016Q2

REPORT INFORMATION
  Report Type: Spontaneous
  Country: SE (occurrence: SE)
  Receive Date: 20160617
  Receipt Date: 20160628
  Transmission Date: 20160815
  Serious: Yes (Death, Other)
  Sender: FDA-Public Use
  Company Number: SE-KADMON PHARMACEUTICALS, LLC-KAD201606-002187

PATIENT
  Age: 60 Year
  Sex: Female

DRUGS (5)
  1. PROPAVAN [Concomitant]
     Active Substance: PROPIOMAZINE
  2. OMEPRAZOLE. [Concomitant]
     Active Substance: OMEPRAZOLE
  3. METHADONE [Concomitant]
     Active Substance: METHADONE HYDROCHLORIDE
  4. RIBAVIRIN. [Suspect]
     Active Substance: RIBAVIRIN
     Indication: CHRONIC HEPATITIS C
     Dosage: FILM-COATED TABLET
     Route: 048
     Dates: start: 20160310, end: 201605
  5. HARVONI [Suspect]
     Active Substance: LEDIPASVIR\SOFOSBUVIR
     Indication: CHRONIC HEPATITIS C
     Dosage: FILM-COATED TABLET
     Route: 048
     Dates: start: 20160310, end: 201605

REACTIONS (4)
  - Pneumonia [Unknown]
  - Fatigue [Unknown]
  - Pneumonia bacterial [Unknown]
  - Death [Fatal]

NARRATIVE: CASE EVENT DATE: 2016
